FAERS Safety Report 20316390 (Version 1)
Quarter: 2022Q1

REPORT INFORMATION
  Report Type: Spontaneous
  Country: US (occurrence: US)
  Receive Date: 20220110
  Receipt Date: 20220110
  Transmission Date: 20220423
  Serious: Yes (Other)
  Sender: FDA-Public Use
  Company Number: US-GSKCCFUS-Case-01255286_AE-73495

PATIENT
  Sex: Male

DRUGS (1)
  1. BREO ELLIPTA [Suspect]
     Active Substance: FLUTICASONE FUROATE\VILANTEROL TRIFENATATE
     Indication: Product used for unknown indication
     Dosage: 100 MCG/MG, 1D
     Route: 055

REACTIONS (4)
  - Laryngeal cancer recurrent [Unknown]
  - Dysphonia [Unknown]
  - Cough [Unknown]
  - Gastrooesophageal reflux disease [Unknown]
